FAERS Safety Report 5115079-1 (Version None)
Quarter: 2006Q3

REPORT INFORMATION
  Report Type: 
  Country: None (occurrence: None)
  Receive Date: 20060925
  Receipt Date: 20060925
  Transmission Date: 20061208
  Serious: No
  Sender: FDA-Public Use
  Company Number: None

PATIENT
  Sex: Female
  Weight: 68 kg

DRUGS (4)
  1. CISPLATIN [Suspect]
     Dosage: 86 MG
  2. DOXORUBICIN HYDROCHLORIDE [Suspect]
     Dosage: 77 MG
  3. G-CSF (FILGRASTIM, AMGEN) [Suspect]
     Dosage: 6 MG
  4. TAXOL [Suspect]
     Dosage: 275 MG

REACTIONS (7)
  - COLONIC FISTULA [None]
  - EXCESSIVE GRANULATION TISSUE [None]
  - FEMALE GENITAL TRACT FISTULA [None]
  - INTESTINAL FISTULA [None]
  - PELVIC MASS [None]
  - PELVIC NEOPLASM [None]
  - VAGINAL DISCHARGE [None]
